FAERS Safety Report 11686284 (Version 1)
Quarter: 2015Q4

REPORT INFORMATION
  Report Type: Spontaneous
  Country: US (occurrence: US)
  Receive Date: 20151030
  Receipt Date: 20151030
  Transmission Date: 20160304
  Serious: No
  Sender: FDA-Public Use
  Company Number: US-MYLANLABS-2015M1007414

PATIENT
  Sex: Female

DRUGS (3)
  1. HERBAL NOS [Concomitant]
     Active Substance: HERBALS
     Dosage: UNK
  2. RISPERIDONE. [Suspect]
     Active Substance: RISPERIDONE
     Indication: DEMENTIA ALZHEIMER^S TYPE
     Dosage: 0.5 MG, HS
     Dates: start: 201410
  3. VITAMIN D                          /00107901/ [Concomitant]
     Active Substance: ERGOCALCIFEROL
     Dosage: UNK

REACTIONS (3)
  - Cyanosis [Recovering/Resolving]
  - Varicose vein [Recovering/Resolving]
  - Vascular injury [Recovering/Resolving]
